FAERS Safety Report 8329408-9 (Version None)
Quarter: 2012Q2

REPORT INFORMATION
  Report Type: 
  Country: None (occurrence: None)
  Receive Date: 20120502
  Receipt Date: 20120425
  Transmission Date: 20120825
  Serious: Yes (Hospitalization, Congenital Anomaly, Other)
  Sender: FDA-Public Use
  Company Number: US-PFIZER INC-2012068268

PATIENT
  Sex: Female
  Weight: 3.2 kg

DRUGS (7)
  1. PROTONIX [Concomitant]
     Indication: GASTROOESOPHAGEAL REFLUX DISEASE
     Dosage: 40 MG, 1X/DAY
     Route: 064
     Dates: start: 20090218
  2. ZOLOFT [Suspect]
     Indication: DEPRESSION
     Dosage: 100 MG, UNK
     Route: 064
     Dates: start: 20080101, end: 20080101
  3. ZOLOFT [Suspect]
     Dosage: 50 MG, UNK
     Route: 064
     Dates: start: 20080101, end: 20090224
  4. ZOLOFT [Suspect]
     Dosage: 100 MG, UNK
     Route: 064
     Dates: start: 20090225, end: 20100101
  5. ZOLOFT [Suspect]
     Dosage: 50 MG, 1X/DAY
     Route: 064
     Dates: start: 20100822
  6. MULTI-VITAMINS [Concomitant]
     Dosage: ONE TABLET
     Route: 064
     Dates: start: 20091030
  7. METRONIDAZOLE [Concomitant]
     Dosage: 500 MG, 2X/DAY
     Route: 064
     Dates: start: 20100823

REACTIONS (11)
  - RESPIRATORY DISTRESS [None]
  - TRICUSPID VALVE INCOMPETENCE [None]
  - ATRIAL SEPTAL DEFECT [None]
  - METABOLIC ACIDOSIS [None]
  - CYANOSIS NEONATAL [None]
  - CONGENITAL AORTIC STENOSIS [None]
  - CARDIOMEGALY [None]
  - TRANSPOSITION OF THE GREAT VESSELS [None]
  - MATERNAL EXPOSURE TIMING UNSPECIFIED [None]
  - PATENT DUCTUS ARTERIOSUS [None]
  - CONGENITAL CORONARY ARTERY MALFORMATION [None]
